FAERS Safety Report 9099746 (Version 7)
Quarter: 2013Q4

REPORT INFORMATION
  Report Type: Report from Study
  Country: JP (occurrence: JP)
  Receive Date: 20130214
  Receipt Date: 20131217
  Transmission Date: 20140711
  Serious: Yes (Hospitalization)
  Sender: FDA-Public Use
  Company Number: JP-PFIZER INC-2013051337

PATIENT
  Age: 35 Year
  Sex: Female
  Weight: 72 kg

DRUGS (7)
  1. TOFACITINIB CITRATE [Suspect]
     Indication: RHEUMATOID ARTHRITIS
     Dosage: 5 MG, 2X/DAY
     Route: 048
     Dates: start: 20080921, end: 20130205
  2. METHOTREXATE [Suspect]
     Indication: RHEUMATOID ARTHRITIS
     Dosage: 4 MG, WEEKLY
     Route: 048
     Dates: start: 20080125, end: 20080501
  3. METHOTREXATE [Suspect]
     Dosage: 6 MG, WEEKLY
     Route: 048
     Dates: start: 20080502, end: 20100427
  4. METHOTREXATE [Suspect]
     Dosage: 8 MG, WEEKLY
     Route: 048
     Dates: start: 20100503
  5. FOLIC ACID [Concomitant]
     Indication: PROPHYLAXIS
     Dosage: 5 MG, ALTERNATE WEEK
     Route: 048
     Dates: start: 20011020
  6. ETODOLAC [Concomitant]
     Indication: RHEUMATOID ARTHRITIS
     Dosage: 200 MG, 2X/DAY
     Route: 048
     Dates: start: 20011110
  7. REBAMIPIDE [Concomitant]
     Indication: GASTRITIS PROPHYLAXIS
     Dosage: 100 MG, 2X/DAY
     Route: 048
     Dates: start: 20011020

REACTIONS (2)
  - Ovarian cancer [Recovering/Resolving]
  - Uterine leiomyoma [Recovered/Resolved]
